FAERS Safety Report 12796067 (Version 2)
Quarter: 2016Q3

REPORT INFORMATION
  Report Type: Spontaneous
  Country: US (occurrence: US)
  Receive Date: 20160929
  Receipt Date: 20160930
  Transmission Date: 20161109
  Serious: Yes (Other)
  Sender: FDA-Public Use
  Company Number: US-TEVA-695572USA

PATIENT
  Sex: Female

DRUGS (2)
  1. TRISENOX [Suspect]
     Active Substance: ARSENIC TRIOXIDE
     Indication: ACUTE PROMYELOCYTIC LEUKAEMIA
     Route: 065
  2. TRISENOX [Suspect]
     Active Substance: ARSENIC TRIOXIDE
     Dosage: RESTARTED AT HALF PREVIOUSLY ADMINISTERED DOSE
     Route: 065

REACTIONS (2)
  - Incorrect dosage administered [Unknown]
  - Neutropenia [Unknown]
